FAERS Safety Report 8622509-7 (Version None)
Quarter: 2012Q3

REPORT INFORMATION
  Report Type: 
  Country: None (occurrence: None)
  Receive Date: 20120827
  Receipt Date: 20120822
  Transmission Date: 20120928
  Serious: No
  Sender: FDA-Public Use
  Company Number: US-PFIZER INC-2012207451

PATIENT
  Age: 64 Year
  Sex: Female
  Weight: 63.49 kg

DRUGS (2)
  1. LIPITOR [Suspect]
     Indication: BLOOD CHOLESTEROL INCREASED
     Dosage: 20 MG,DAILY
  2. TRIHEXYPHENIDYL [Concomitant]
     Indication: TORTICOLLIS
     Dosage: 5MG TWO TIMES DAILY

REACTIONS (1)
  - GASTROOESOPHAGEAL REFLUX DISEASE [None]
